FAERS Safety Report 22331469 (Version 1)
Quarter: 2023Q2

REPORT INFORMATION
  Report Type: Spontaneous
  Country: US (occurrence: US)
  Receive Date: 20230517
  Receipt Date: 20230517
  Transmission Date: 20230722
  Serious: No
  Sender: FDA-Public Use
  Company Number: US-SA-SAC20230517000672

PATIENT
  Age: 59 Year
  Sex: Female

DRUGS (1)
  1. AUBAGIO [Suspect]
     Active Substance: TERIFLUNOMIDE
     Indication: Oral candidiasis
     Dosage: 14 MG, QD
     Route: 048
     Dates: start: 20210305

REACTIONS (2)
  - Balance disorder [Recovering/Resolving]
  - Product use in unapproved indication [Unknown]
